FAERS Safety Report 5364559-2 (Version None)
Quarter: 2007Q2

REPORT INFORMATION
  Report Type: 
  Country: None (occurrence: None)
  Receive Date: 20070530
  Receipt Date: 20070118
  Transmission Date: 20071010
  Serious: No
  Sender: FDA-Public Use
  Company Number: 2007PV028657

PATIENT
  Age: 58 Year
  Sex: Female
  Weight: 131.5431 kg

DRUGS (3)
  1. BYETTA [Suspect]
     Indication: DIABETES MELLITUS NON-INSULIN-DEPENDENT
     Dosage: 5 MCG;BID;SC;10 MCG;SC;5 MCG;SC
     Route: 058
     Dates: start: 20070118, end: 20070212
  2. BYETTA [Suspect]
     Indication: DIABETES MELLITUS NON-INSULIN-DEPENDENT
     Dosage: 5 MCG;BID;SC;10 MCG;SC;5 MCG;SC
     Route: 058
     Dates: start: 20070213, end: 20070213
  3. BYETTA [Suspect]
     Indication: DIABETES MELLITUS NON-INSULIN-DEPENDENT
     Dosage: 5 MCG;BID;SC;10 MCG;SC;5 MCG;SC
     Route: 058
     Dates: start: 20070213

REACTIONS (6)
  - BLOOD GLUCOSE DECREASED [None]
  - BLOOD GLUCOSE INCREASED [None]
  - FEELING ABNORMAL [None]
  - INJECTION SITE BRUISING [None]
  - INJECTION SITE PAIN [None]
  - TREMOR [None]
